FAERS Safety Report 10027428 (Version 1)
Quarter: 2014Q1

REPORT INFORMATION
  Report Type: Spontaneous
  Country: FR (occurrence: None)
  Receive Date: 20140318
  Receipt Date: 20140318
  Transmission Date: 20141002
  Serious: Yes (Hospitalization)
  Sender: FDA-Public Use
  Company Number: FR-RRD-14-00030

PATIENT
  Age: 6 Day
  Sex: Male
  Weight: .7 kg

DRUGS (8)
  1. NEOPROFEN [Suspect]
     Indication: PATENT DUCTUS ARTERIOSUS
     Route: 042
     Dates: start: 20140208, end: 20140208
  2. CAFFEINE [Suspect]
     Indication: APNOEA NEONATAL
     Dates: start: 20140203
  3. FENTANYL [Suspect]
     Indication: PAIN
     Dosage: CONTINUOUS (NOT OTHERWISE SPECIFED)
     Route: 042
     Dates: start: 20140203
  4. LASILIX (FUROSEMIDE) (FUROSEMIDE) [Suspect]
     Indication: PRODUCT USED FOR UNKNOWN INDICATION
     Dosage: CONTINUOUS (NOT OTHERWISE SPECIFIED
     Route: 042
     Dates: start: 20140203
  5. PHYTOMENADIONE [Suspect]
     Indication: HAEMORRHAGE PROPHYLAXIS
     Dosage: 1 WEEK
     Dates: start: 20140203
  6. ATROPINE [Suspect]
     Indication: ENDOTRACHEAL INTUBATION
     Dosage: NOT OTHERWISE SPECIFIED
     Route: 042
     Dates: start: 20140208
  7. KETAMINE [Suspect]
     Indication: ENDOTRACHEAL INTUBATION
     Dosage: NOT OTHERWISE SPECIFIED
     Route: 042
  8. RIFAMYCIN [Concomitant]

REACTIONS (2)
  - Pulmonary haemorrhage [None]
  - Pulmonary alveolar haemorrhage [None]
